FAERS Safety Report 5215246-2 (Version None)
Quarter: 2007Q1

REPORT INFORMATION
  Report Type: 
  Country: None (occurrence: None)
  Receive Date: 20070117
  Receipt Date: 20070109
  Transmission Date: 20070707
  Serious: Yes (Hospitalization)
  Sender: FDA-Public Use
  Company Number: GXKR2006DE07913

PATIENT
  Age: 50 Year
  Sex: Female

DRUGS (2)
  1. GABAPENTIN [Suspect]
     Indication: EPILEPSY
     Dosage: ORAL
     Route: 048
     Dates: start: 20010101
  2. KEPPRA [Concomitant]

REACTIONS (2)
  - CROHN'S DISEASE [None]
  - ILEUS [None]
